FAERS Safety Report 5365796-3 (Version None)
Quarter: 2007Q2

REPORT INFORMATION
  Report Type: 
  Country: None (occurrence: None)
  Receive Date: 20070619
  Receipt Date: 20070605
  Transmission Date: 20071010
  Serious: Yes (Hospitalization)
  Sender: FDA-Public Use
  Company Number: 157409USA

PATIENT
  Age: 77 Year
  Sex: Male

DRUGS (5)
  1. FLUOROURACIL [Suspect]
     Indication: COLON CANCER
     Dosage: CYCLICAL (5600 MG); INTRAVENOUS (NOT OTHERWISE SPECIFIED)
     Route: 042
     Dates: start: 20070509, end: 20070509
  2. FOLINIC ACID [Suspect]
     Indication: COLON CANCER
     Dosage: CYCLICAL (800 MG); INTRAVENOUS (NOT OTHERWISE SPECIFIED)
     Route: 042
     Dates: start: 20070507, end: 20070507
  3. OXALIPLATIN [Suspect]
     Indication: COLON CANCER
     Dosage: CYCLICAL (170 MG); INTRAVENOUS (NOT OTHERWISE SPECIFIED)
     Route: 042
     Dates: start: 20070507, end: 20070507
  4. VERAPAMIL [Concomitant]
  5. SOTALOL HYDROCHLORIDE [Concomitant]

REACTIONS (3)
  - DIARRHOEA [None]
  - HYPOTENSION [None]
  - VOMITING [None]
